FAERS Safety Report 6771969-5 (Version None)
Quarter: 2010Q2

REPORT INFORMATION
  Report Type: 
  Country: None (occurrence: None)
  Receive Date: 20100616
  Receipt Date: 20090721
  Transmission Date: 20101027
  Serious: No
  Sender: FDA-Public Use
  Company Number: US-ASTRAZENECA-2009UW18473

PATIENT
  Sex: Female

DRUGS (1)
  1. RHINOCORT [Suspect]
     Indication: SEASONAL ALLERGY
     Route: 045

REACTIONS (8)
  - DRUG INEFFECTIVE [None]
  - EYE PRURITUS [None]
  - POSTNASAL DRIP [None]
  - PRURITUS [None]
  - SEASONAL ALLERGY [None]
  - SINUSITIS [None]
  - SNEEZING [None]
  - THROAT IRRITATION [None]
